FAERS Safety Report 4517304-4 (Version None)
Quarter: 2004Q4

REPORT INFORMATION
  Report Type: 
  Country: None (occurrence: None)
  Receive Date: 20041005
  Receipt Date: 20040728
  Transmission Date: 20050328
  Serious: No
  Sender: FDA-Public Use
  Company Number: SU-2004-002549

PATIENT
  Age: 79 Year
  Sex: Female
  Weight: 44.4525 kg

DRUGS (7)
  1. BENICAR HCT [Suspect]
     Indication: HYPERTENSION
     Dosage: 20.125 MG QD PO
     Route: 048
     Dates: start: 20040528
  2. THEOPHYLLINE [Suspect]
     Indication: CHRONIC OBSTRUCTIVE AIRWAYS DISEASE
     Dosage: 200 MG BID PO
     Route: 048
  3. CALCITONIN [Concomitant]
  4. ADVAIR DISKUS 100/50 [Concomitant]
  5. SPIRIVA ^PFIZER^ [Concomitant]
  6. ALBUTEROL [Concomitant]
  7. NAPROXEN [Concomitant]

REACTIONS (1)
  - DRUG INTERACTION [None]
